FAERS Safety Report 7183657-4 (Version None)
Quarter: 2010Q4

REPORT INFORMATION
  Report Type: 
  Country: None (occurrence: None)
  Receive Date: 20101220
  Receipt Date: 20101220
  Transmission Date: 20110411
  Serious: Yes (Hospitalization)
  Sender: FDA-Public Use
  Company Number: None

PATIENT
  Age: 69 Year
  Sex: Male
  Weight: 71.8 kg

DRUGS (14)
  1. COUMADIN [Suspect]
     Indication: ATRIAL FIBRILLATION
     Dosage: 3MG QHS PO  CHRONIC
     Route: 048
  2. M.V.I. [Concomitant]
  3. NASONEX [Concomitant]
  4. AMLODIPINE [Concomitant]
  5. TYLENOL [Concomitant]
  6. XANAX [Concomitant]
  7. SPIRONOLACTONE [Concomitant]
  8. PRILOSEC [Concomitant]
  9. HYDROCODONE [Concomitant]
  10. SIMETHECONE [Concomitant]
  11. ULTRACET [Concomitant]
  12. FLONASE [Concomitant]
  13. METOPROLOL XR [Concomitant]
  14. TYLENOL [Concomitant]

REACTIONS (1)
  - IRON DEFICIENCY ANAEMIA [None]
